FAERS Safety Report 6850919-7 (Version None)
Quarter: 2010Q3

REPORT INFORMATION
  Report Type: 
  Country: None (occurrence: None)
  Receive Date: 20100716
  Receipt Date: 20071024
  Transmission Date: 20110219
  Serious: No
  Sender: FDA-Public Use
  Company Number: US-PFIZER INC-2007090640

PATIENT
  Sex: Female

DRUGS (3)
  1. CHANTIX [Suspect]
     Dates: start: 20070101
  2. SERTRALINE HCL [Concomitant]
  3. MONTELUKAST SODIUM [Concomitant]

REACTIONS (1)
  - ANGER [None]
